FAERS Safety Report 16634411 (Version 3)
Quarter: 2019Q3

REPORT INFORMATION
  Report Type: Spontaneous
  Country: TW (occurrence: TW)
  Receive Date: 20190726
  Receipt Date: 20190903
  Transmission Date: 20191004
  Serious: Yes (Hospitalization)
  Sender: FDA-Public Use
  Company Number: TW-AMGEN-TWNSP2019118646

PATIENT
  Age: 73 Year
  Sex: Female

DRUGS (5)
  1. METHOTREXATE SODIUM. [Concomitant]
     Active Substance: METHOTREXATE SODIUM
     Dosage: 3 DOSAGE FORM, QWK
  2. TRAMADOL. [Concomitant]
     Active Substance: TRAMADOL
     Dosage: 0.5 DOSAGE FORM, QD
  3. ENBREL [Suspect]
     Active Substance: ETANERCEPT
     Indication: RHEUMATOID ARTHRITIS
     Dosage: 25 MG, BIW
     Route: 058
     Dates: start: 20150704, end: 201907
  4. FOLIC ACID. [Concomitant]
     Active Substance: FOLIC ACID
     Dosage: 6 DOSAGE FORM, QWK
  5. METHYLPREDNISOLONE. [Concomitant]
     Active Substance: METHYLPREDNISOLONE
     Dosage: 1 DOSAGE FORM, QD

REACTIONS (2)
  - Pyrexia [Recovering/Resolving]
  - Urinary tract infection [Not Recovered/Not Resolved]
